FAERS Safety Report 7915855-3 (Version None)
Quarter: 2011Q4

REPORT INFORMATION
  Report Type: 
  Country: None (occurrence: None)
  Receive Date: 20111115
  Receipt Date: 20111102
  Transmission Date: 20120403
  Serious: Yes (Other)
  Sender: FDA-Public Use
  Company Number: FR-ROCHE-1006439

PATIENT
  Sex: Male
  Weight: 55.07 kg

DRUGS (12)
  1. LUCENTIS [Suspect]
     Indication: AGE-RELATED MACULAR DEGENERATION
     Dosage: FIRST INJECTION
     Route: 050
     Dates: start: 20100623
  2. BETADINE [Concomitant]
  3. VITABACT [Concomitant]
  4. LUCENTIS [Suspect]
     Dosage: FOURTH INJECTION
     Dates: start: 20101213
  5. LANSOPRAZOLE [Concomitant]
  6. LUCENTIS [Suspect]
     Dosage: SIXTH INJECTION
     Dates: start: 20110720
  7. LUCENTIS [Suspect]
     Dosage: SECOND INJECTION
     Dates: start: 20100721
  8. FLUOXETINE HCL [Concomitant]
  9. PIASCLEDINE (BRAZIL) [Concomitant]
  10. LUCENTIS [Suspect]
     Dosage: THIRD INJECTION
     Dates: start: 20100906
  11. LUCENTIS [Suspect]
     Dosage: FIFTH INJECTION
     Dates: start: 20110307
  12. BENOXINATE HYDROCHLORIDE [Concomitant]

REACTIONS (6)
  - ULCERATIVE KERATITIS [None]
  - ATOPY [None]
  - ECZEMA EYELIDS [None]
  - EYE IRRITATION [None]
  - RETINAL DETACHMENT [None]
  - EYELID OEDEMA [None]
